FAERS Safety Report 16917159 (Version 2)
Quarter: 2019Q4

REPORT INFORMATION
  Report Type: Spontaneous
  Country: JP (occurrence: JP)
  Receive Date: 20191015
  Receipt Date: 20191213
  Transmission Date: 20200122
  Serious: Yes (Other)
  Sender: FDA-Public Use
  Company Number: JP-ADVANZ PHARMA-GSH201805-001753

PATIENT

DRUGS (4)
  1. PREDNISOLONE. [Concomitant]
     Active Substance: PREDNISOLONE
     Indication: SYSTEMIC LUPUS ERYTHEMATOSUS
     Dosage: 30 MG, QD
     Dates: start: 200803
  2. PREDNISOLONE. [Concomitant]
     Active Substance: PREDNISOLONE
     Dosage: DOSE REDUCTION
  3. HYDROXYCHLOROQUINE SULFATE (AUTHORIZED GENERIC),PLAQUENIL [Suspect]
     Active Substance: HYDROXYCHLOROQUINE SULFATE
     Indication: CUTANEOUS LUPUS ERYTHEMATOSUS
     Dosage: 400 MG, FREQ: UNK X 1 DAYS
     Route: 048
     Dates: start: 201607
  4. HYDROXYCHLOROQUINE SULFATE (AUTHORIZED GENERIC),PLAQUENIL [Suspect]
     Active Substance: HYDROXYCHLOROQUINE SULFATE
     Dosage: 200 MG, UNK
     Route: 048

REACTIONS (9)
  - Erythema [Recovered/Resolved]
  - Pyrexia [Recovered/Resolved]
  - Toxic skin eruption [Recovered/Resolved]
  - Drug eruption [Recovered/Resolved]
  - Erythema [Recovered/Resolved]
  - Malaise [Recovered/Resolved]
  - Conjunctival hyperaemia [Recovered/Resolved]
  - Lymphadenopathy [Recovered/Resolved]
  - Haemorrhage subcutaneous [Recovered/Resolved]

NARRATIVE: CASE EVENT DATE: 2016
